FAERS Safety Report 9581946 (Version 2)
Quarter: 2013Q4

REPORT INFORMATION
  Report Type: Spontaneous
  Country: US (occurrence: US)
  Receive Date: 20131002
  Receipt Date: 20131010
  Transmission Date: 20140711
  Serious: Yes (Other)
  Sender: FDA-Public Use
  Company Number: US-PFIZER INC-2013278504

PATIENT
  Age: 78 Year
  Sex: Female
  Weight: 40.82 kg

DRUGS (5)
  1. CELEBREX [Suspect]
     Indication: ARTHRITIS
     Dosage: UNK
     Dates: start: 201306
  2. BENICAR [Suspect]
     Indication: HYPERTENSION
     Dosage: 40 MG
  3. PREDNISONE [Suspect]
     Indication: PAIN
     Dosage: 5 MG
  4. BYSTOLIC [Suspect]
     Indication: HYPERTENSION
     Dosage: 5 MG
  5. CIPRO [Concomitant]
     Indication: SINUS CONGESTION
     Dosage: UNK

REACTIONS (7)
  - Drug administration error [Unknown]
  - Cataract [Unknown]
  - Erythema [Unknown]
  - Local swelling [Unknown]
  - Feeling hot [Unknown]
  - Blood pressure increased [Unknown]
  - Yellow skin [Unknown]
